FAERS Safety Report 7107722-2 (Version None)
Quarter: 2010Q4

REPORT INFORMATION
  Report Type: 
  Country: None (occurrence: None)
  Receive Date: 20101117
  Receipt Date: 20101115
  Transmission Date: 20110411
  Serious: Yes (Other)
  Sender: FDA-Public Use
  Company Number: US-BRISTOL-MYERS SQUIBB COMPANY-15385719

PATIENT
  Sex: Male

DRUGS (2)
  1. GLUCOPHAGE XR [Suspect]
  2. GLYBURIDE [Suspect]

REACTIONS (3)
  - BLOOD GLUCOSE INCREASED [None]
  - CARDIAC OPERATION [None]
  - GLYCOSYLATED HAEMOGLOBIN INCREASED [None]
